FAERS Safety Report 4545963-9 (Version None)
Quarter: 2005Q1

REPORT INFORMATION
  Report Type: 
  Country: None (occurrence: None)
  Receive Date: 20050106
  Receipt Date: 20041220
  Transmission Date: 20050727
  Serious: Yes (Hospitalization)
  Sender: FDA-Public Use
  Company Number: US-JNJFOC-20050100152

PATIENT
  Sex: Male
  Weight: 97.52 kg

DRUGS (6)
  1. IMODIUM A-D [Suspect]
     Route: 049
  2. IMODIUM A-D [Suspect]
     Route: 049
  3. ANTI-NAUSEA MEDICATION [Suspect]
     Indication: NAUSEA
  4. OXYCODONE HCL [Concomitant]
  5. DURAGESIC [Concomitant]
  6. NEURONTIN [Concomitant]

REACTIONS (3)
  - DIARRHOEA [None]
  - NAUSEA [None]
  - OVERDOSE [None]
